FAERS Safety Report 4925729-8 (Version None)
Quarter: 2006Q1

REPORT INFORMATION
  Report Type: 
  Country: None (occurrence: None)
  Receive Date: 20060228
  Receipt Date: 20050131
  Transmission Date: 20060701
  Serious: No
  Sender: FDA-Public Use
  Company Number: US-GLAXOSMITHKLINE-A0543099A

PATIENT
  Sex: Female

DRUGS (3)
  1. LAMICTAL [Suspect]
     Route: 048
     Dates: start: 19990101
  2. THYROID TAB [Concomitant]
  3. ATIVAN [Concomitant]

REACTIONS (4)
  - ASTHENIA [None]
  - DIZZINESS [None]
  - GASTRIC DISORDER [None]
  - WEIGHT DECREASED [None]
